FAERS Safety Report 7691353-X (Version None)
Quarter: 2011Q3

REPORT INFORMATION
  Report Type: 
  Country: None (occurrence: None)
  Receive Date: 20110818
  Receipt Date: 20110810
  Transmission Date: 20111222
  Serious: Yes (Hospitalization)
  Sender: FDA-Public Use
  Company Number: PHEH2011US01191

PATIENT
  Sex: Male
  Weight: 120.18 kg

DRUGS (1)
  1. EXJADE [Suspect]
     Indication: HAEMATOPOIETIC NEOPLASM
     Dosage: 1000 MG, UNK
     Route: 048
     Dates: start: 20100127

REACTIONS (1)
  - UPPER LIMB FRACTURE [None]
